FAERS Safety Report 10776332 (Version 1)
Quarter: 2015Q1

REPORT INFORMATION
  Report Type: Spontaneous
  Country: US (occurrence: US)
  Receive Date: 20150209
  Receipt Date: 20150209
  Transmission Date: 20150721
  Serious: No
  Sender: FDA-Public Use
  Company Number: US-GILEAD-2013-0070379

PATIENT
  Sex: Male

DRUGS (1)
  1. RANEXA [Suspect]
     Active Substance: RANOLAZINE
     Indication: MYOCARDIAL ISCHAEMIA
     Dosage: 1000 MG, BID
     Route: 048

REACTIONS (2)
  - Product solubility abnormal [Unknown]
  - Discomfort [Unknown]
